FAERS Safety Report 24278360 (Version 9)
Quarter: 2025Q3

REPORT INFORMATION
  Report Type: Spontaneous
  Country: US (occurrence: US)
  Receive Date: 20240903
  Receipt Date: 20250718
  Transmission Date: 20251020
  Serious: Yes (Death)
  Sender: PFIZER
  Company Number: US-PFIZER INC-PV202400070986

PATIENT
  Sex: Male

DRUGS (2)
  1. NIVESTYM [Suspect]
     Active Substance: FILGRASTIM-AAFI
  2. NIVESTYM [Suspect]
     Active Substance: FILGRASTIM-AAFI

REACTIONS (3)
  - Death [Fatal]
  - Drug ineffective [Unknown]
  - Incorrect route of product administration [Unknown]
